FAERS Safety Report 15067135 (Version 2)
Quarter: 2018Q2

REPORT INFORMATION
  Report Type: Report from Study
  Country: ES (occurrence: ES)
  Receive Date: 20180626
  Receipt Date: 20180628
  Transmission Date: 20180711
  Serious: Yes (Other)
  Sender: FDA-Public Use
  Company Number: ES-GLAXOSMITHKLINE-ES2018108464

PATIENT
  Age: 44 Year
  Sex: Female

DRUGS (1)
  1. BELIMUMAB [Suspect]
     Active Substance: BELIMUMAB
     Indication: SYSTEMIC LUPUS ERYTHEMATOSUS
     Dosage: 440 MG / 4 WEEKS
     Route: 042
     Dates: start: 20180112

REACTIONS (1)
  - Glomerulonephritis proliferative [Recovering/Resolving]

NARRATIVE: CASE EVENT DATE: 20180523
